FAERS Safety Report 9282314 (Version 1)
Quarter: 2013Q2

REPORT INFORMATION
  Report Type: Spontaneous
  Country: BR (occurrence: BR)
  Receive Date: 20130510
  Receipt Date: 20130510
  Transmission Date: 20140414
  Serious: Yes (Hospitalization)
  Sender: FDA-Public Use
  Company Number: BR-ROCHE-1223091

PATIENT
  Sex: Female
  Weight: 72 kg

DRUGS (19)
  1. MABTHERA [Suspect]
     Indication: DERMATOMYOSITIS
     Route: 042
     Dates: start: 20111215
  2. ALENDRONATE [Concomitant]
     Route: 048
  3. AZATHIOPRINE [Concomitant]
     Route: 048
  4. BROMOPRIDE [Concomitant]
     Route: 048
  5. CALCIUM CARBONATE [Concomitant]
     Route: 048
  6. CYCLOSPORINE [Concomitant]
     Route: 048
  7. DIAZEPAM [Concomitant]
     Route: 048
  8. DILTIAZEM [Concomitant]
     Route: 048
  9. DIPYRONE [Concomitant]
     Route: 048
  10. DIPYRONE [Concomitant]
     Route: 048
  11. ENALAPRIL [Concomitant]
     Route: 048
  12. FLUOXETIN [Concomitant]
     Route: 048
  13. HYDROCHLOROTHIAZIDE [Concomitant]
     Route: 048
  14. HUMAN INSULIN [Concomitant]
     Route: 058
  15. ISOPHANE HUMAN INSULIN [Concomitant]
     Route: 058
  16. METFORMIN [Concomitant]
     Route: 048
  17. OMEPRAZOLE [Concomitant]
     Route: 048
  18. OXYCODONE [Concomitant]
     Route: 048
  19. PREDNISONE [Concomitant]
     Route: 048

REACTIONS (4)
  - Oedema peripheral [Recovered/Resolved]
  - Face oedema [Recovered/Resolved]
  - Angioedema [Recovered/Resolved]
  - Oedema [Unknown]
